FAERS Safety Report 25862170 (Version 1)
Quarter: 2025Q3

REPORT INFORMATION
  Report Type: 
  Country: AU (occurrence: AU)
  Receive Date: 20250930
  Receipt Date: 20250930
  Transmission Date: 20251021
  Serious: Yes (Other)
  Sender: CELLTRION
  Company Number: AU-CELLTRION INC.-2025AU034444

PATIENT

DRUGS (2)
  1. INFLIXIMAB [Suspect]
     Active Substance: INFLIXIMAB
     Indication: Product used for unknown indication
  2. USTEKINUMAB [Suspect]
     Active Substance: USTEKINUMAB
     Indication: Product used for unknown indication

REACTIONS (16)
  - Bronchiectasis [Unknown]
  - Hypoxia [Unknown]
  - Respiratory failure [Unknown]
  - Interstitial lung disease [Unknown]
  - Pneumocystis jirovecii pneumonia [Unknown]
  - Pneumonia [Unknown]
  - White blood cell count increased [Unknown]
  - C-reactive protein increased [Unknown]
  - Condition aggravated [Unknown]
  - Polyuria [Unknown]
  - Presyncope [Unknown]
  - Tachypnoea [Unknown]
  - Influenza B virus test positive [Unknown]
  - Dyspnoea [Unknown]
  - Herpes simplex [Unknown]
  - Nausea [Unknown]
